FAERS Safety Report 6614190-3 (Version None)
Quarter: 2010Q1

REPORT INFORMATION
  Report Type: 
  Country: None (occurrence: None)
  Receive Date: 20100304
  Receipt Date: 20100225
  Transmission Date: 20100710
  Serious: Yes (Other)
  Sender: FDA-Public Use
  Company Number: GB-PFIZER INC-2010025000

PATIENT
  Age: 59 Year
  Sex: Female

DRUGS (2)
  1. SALAZOPYRIN [Suspect]
     Indication: CROHN'S DISEASE
     Dosage: 500 MG, 4X/DAY
  2. SALAZOPYRIN [Suspect]
     Dosage: 500 MG, 8X/DAY

REACTIONS (7)
  - ARTHRALGIA [None]
  - BREAST CANCER [None]
  - DRUG INTERACTION [None]
  - IMMUNE SYSTEM DISORDER [None]
  - LIP SWELLING [None]
  - STOMATITIS [None]
  - SWELLING FACE [None]
